FAERS Safety Report 10447699 (Version 2)
Quarter: 2014Q3

REPORT INFORMATION
  Report Type: Spontaneous
  Country: BR (occurrence: BR)
  Receive Date: 20140911
  Receipt Date: 20140912
  Transmission Date: 20150326
  Serious: Yes (Other)
  Sender: FDA-Public Use
  Company Number: BR-PFIZER INC-2014250710

PATIENT
  Sex: Female

DRUGS (2)
  1. DIOVAN [Concomitant]
     Active Substance: VALSARTAN
     Indication: BLOOD PRESSURE ABNORMAL
     Dosage: UNK
  2. ZOLOFT [Suspect]
     Active Substance: SERTRALINE HYDROCHLORIDE
     Dosage: 25 MG (HALF OF A 50MG TABLET), 2X/DAY
     Route: 048

REACTIONS (4)
  - Pain [Unknown]
  - Fall [Unknown]
  - Gait disturbance [Unknown]
  - Femur fracture [Unknown]

NARRATIVE: CASE EVENT DATE: 2014
